FAERS Safety Report 9133096 (Version 1)
Quarter: 2013Q1

REPORT INFORMATION
  Report Type: Spontaneous
  Country: TR (occurrence: TR)
  Receive Date: 20130116
  Receipt Date: 20130116
  Transmission Date: 20140127
  Serious: Yes (Other)
  Sender: FDA-Public Use
  Company Number: PHHY2012TR124386

PATIENT
  Age: 64 Year
  Sex: Female
  Weight: 95 kg

DRUGS (1)
  1. ACLASTA [Suspect]
     Route: 042

REACTIONS (4)
  - Renal failure acute [Not Recovered/Not Resolved]
  - Blood creatinine increased [Recovering/Resolving]
  - Metabolic acidosis [Unknown]
  - Hyperkalaemia [Unknown]
